FAERS Safety Report 8044962-2 (Version None)
Quarter: 2012Q1

REPORT INFORMATION
  Report Type: 
  Country: None (occurrence: None)
  Receive Date: 20120111
  Receipt Date: 20120111
  Transmission Date: 20120608
  Serious: Yes (Life-Threatening)
  Sender: FDA-Public Use
  Company Number: None

PATIENT
  Age: 74 Year
  Sex: Female
  Weight: 179 kg

DRUGS (4)
  1. NIFEDIPINE [Suspect]
     Dosage: 60 MG TWO DAILY ADVERSE EFFECTS
     Dates: start: 20111101
  2. BETABLOCKER [Concomitant]
  3. NIFEDIPINE [Suspect]
     Indication: HYPERTENSION
     Dosage: 60 MG TWICE DAILY ADVERSE EFFECTS
     Dates: start: 20111204, end: 20111227
  4. CARVEDILOL [Concomitant]

REACTIONS (12)
  - NO THERAPEUTIC RESPONSE [None]
  - OEDEMA PERIPHERAL [None]
  - MUSCULAR WEAKNESS [None]
  - ASTHENIA [None]
  - FLATULENCE [None]
  - MYALGIA [None]
  - ABDOMINAL PAIN UPPER [None]
  - NAUSEA [None]
  - MUSCLE SPASMS [None]
  - PRODUCT SUBSTITUTION ISSUE [None]
  - MALAISE [None]
  - JOINT SWELLING [None]
